FAERS Safety Report 9251122 (Version 2)
Quarter: 2014Q2

REPORT INFORMATION
  Report Type: Spontaneous
  Country: IT (occurrence: IT)
  Receive Date: 20130424
  Receipt Date: 20140418
  Transmission Date: 20141212
  Serious: Yes (Other)
  Sender: FDA-Public Use
  Company Number: IT-CELGENEUS-083-21880-13042529

PATIENT
  Sex: 0

DRUGS (13)
  1. REVLIMID [Suspect]
     Indication: PLASMA CELL MYELOMA
     Dosage: 25 MILLIGRAM
     Route: 048
  2. REVLIMID [Suspect]
     Dosage: 5 MILLIGRAM
     Route: 048
  3. REVLIMID [Suspect]
     Dosage: 15 MILLIGRAM
     Route: 048
  4. THALIDOMIDE [Suspect]
     Indication: PLASMA CELL MYELOMA
     Dosage: 8640000 MILLIGRAM
     Route: 048
  5. THALIDOMIDE [Suspect]
     Dosage: 4320000 MILLIGRAM
     Route: 048
  6. STEROIDS [Concomitant]
     Indication: PRODUCT USED FOR UNKNOWN INDICATION
     Route: 065
  7. MELPHALAN [Concomitant]
     Indication: PLASMA CELL MYELOMA
     Dosage: 7.5 MILLIGRAM/SQ. METER
     Route: 065
  8. PREDNISONE [Concomitant]
     Indication: PLASMA CELL MYELOMA
     Dosage: 60 MILLIGRAM/SQ. METER
     Route: 065
  9. PREDNISONE [Concomitant]
     Dosage: 50 MILLIGRAM
     Route: 065
  10. DEXAMETHASONE [Concomitant]
     Indication: PLASMA CELL MYELOMA
     Dosage: 40 MILLIGRAM
     Route: 065
  11. DEXAMETHASONE [Concomitant]
     Dosage: 20 MILLIGRAM
     Route: 065
  12. DEXAMETHASONE [Concomitant]
     Dosage: 10 MILLIGRAM
     Route: 065
  13. BORTEZOMIB [Concomitant]
     Indication: PLASMA CELL MYELOMA
     Route: 065

REACTIONS (2)
  - Erythema multiforme [Unknown]
  - Parapsoriasis [Unknown]
